FAERS Safety Report 6534655-2 (Version None)
Quarter: 2010Q1

REPORT INFORMATION
  Report Type: 
  Country: None (occurrence: None)
  Receive Date: 20100112
  Receipt Date: 20100105
  Transmission Date: 20100710
  Serious: Yes (Hospitalization, Other)
  Sender: FDA-Public Use
  Company Number: US-BAYER-200943537NA

PATIENT
  Age: 72 Year
  Sex: Female

DRUGS (3)
  1. NEXAVAR [Suspect]
     Indication: HEPATIC NEOPLASM MALIGNANT
     Dosage: AS USED: 400-200 MG  UNIT DOSE: 200 MG
     Route: 048
     Dates: start: 20090901, end: 20091215
  2. HYDROCHLOROTHIAZIDE [Concomitant]
  3. ATACAND [Concomitant]

REACTIONS (7)
  - ASCITES [None]
  - BLOOD PRESSURE DECREASED [None]
  - DIARRHOEA [None]
  - HEPATIC FUNCTION ABNORMAL [None]
  - HYPOKALAEMIA [None]
  - LABORATORY TEST ABNORMAL [None]
  - MYOCARDIAL INFARCTION [None]
